FAERS Safety Report 21541277 (Version 1)
Quarter: 2022Q4

REPORT INFORMATION
  Report Type: Spontaneous
  Country: US (occurrence: US)
  Receive Date: 20221102
  Receipt Date: 20221102
  Transmission Date: 20230113
  Serious: Yes (Other)
  Sender: FDA-Public Use
  Company Number: US-SUN PHARMACEUTICAL INDUSTRIES LTD-2022R1-361563

PATIENT
  Age: 52 Year
  Sex: Male

DRUGS (7)
  1. HYDROXYCHLOROQUINE [Suspect]
     Active Substance: HYDROXYCHLOROQUINE
     Indication: Lyme disease
     Dosage: 200 MILLIGRAM, BID
     Route: 048
  2. MINOCYCLINE [Suspect]
     Active Substance: MINOCYCLINE HYDROCHLORIDE
     Indication: Lyme disease
     Dosage: 100 MILLIGRAM, BID
     Route: 048
  3. PYRAZINAMIDE [Suspect]
     Active Substance: PYRAZINAMIDE
     Indication: Lyme disease
     Dosage: 2000 MILLIGRAM, DAILY
     Route: 065
  4. DAPSONE [Suspect]
     Active Substance: DAPSONE
     Indication: Lyme disease
     Dosage: 100 MILLIGRAM, DAILY
     Route: 065
  5. DISULFIRAM [Suspect]
     Active Substance: DISULFIRAM
     Indication: Lyme disease
     Dosage: 250 MILLIGRAM, BID
     Route: 048
  6. METHYLENE BLUE [Suspect]
     Active Substance: METHYLENE BLUE
     Indication: Lyme disease
     Dosage: 50 MILLIGRAM, BID
     Route: 048
  7. RIFABUTIN [Suspect]
     Active Substance: RIFABUTIN
     Indication: Lyme disease
     Dosage: 150 MILLIGRAM, BID
     Route: 048

REACTIONS (2)
  - Disease progression [Unknown]
  - Therapeutic response decreased [Unknown]
